FAERS Safety Report 15799054 (Version 1)
Quarter: 2019Q1

REPORT INFORMATION
  Report Type: Report from Study
  Country: US (occurrence: US)
  Receive Date: 20190108
  Receipt Date: 20190108
  Transmission Date: 20190417
  Serious: Yes (Other)
  Sender: FDA-Public Use
  Company Number: US-JAZZ-2018-US-015927

PATIENT
  Sex: Male

DRUGS (2)
  1. XYREM [Suspect]
     Active Substance: SODIUM OXYBATE
     Dosage: 3.75 G, BID
     Route: 048
     Dates: start: 2018
  2. XYREM [Suspect]
     Active Substance: SODIUM OXYBATE
     Indication: NARCOLEPSY
     Dosage: LOWEST DOSE
     Route: 048
     Dates: start: 201809, end: 2018

REACTIONS (3)
  - Sleep apnoea syndrome [Unknown]
  - Panic attack [Unknown]
  - Affect lability [Recovered/Resolved]

NARRATIVE: CASE EVENT DATE: 2018
